FAERS Safety Report 8859608 (Version 1)
Quarter: 2012Q4

REPORT INFORMATION
  Report Type: 
  Country: NL (occurrence: NL)
  Receive Date: 20121025
  Receipt Date: 20121025
  Transmission Date: 20130627
  Serious: Yes (Hospitalization)
  Sender: FDA-Public Use
  Company Number: NL-MERCK-1210NLD007594

PATIENT
  Age: 32 Year
  Sex: Female

DRUGS (1)
  1. NOXAFIL [Suspect]
     Route: 048

REACTIONS (2)
  - Adverse event [Unknown]
  - Product quality issue [Unknown]
